FAERS Safety Report 14171977 (Version 4)
Quarter: 2018Q1

REPORT INFORMATION
  Report Type: Spontaneous
  Country: US (occurrence: US)
  Receive Date: 20171108
  Receipt Date: 20180323
  Transmission Date: 20180508
  Serious: Yes (Disabling, Other)
  Sender: FDA-Public Use
  Company Number: US-009507513-1710USA005692

PATIENT
  Sex: Male
  Weight: 113.38 kg

DRUGS (5)
  1. ZOSTAVAX [Suspect]
     Active Substance: VARICELLA-ZOSTER VIRUS STRAIN OKA/MERCK LIVE ANTIGEN
     Indication: PROPHYLAXIS
     Route: 058
     Dates: start: 20141011, end: 20141011
  2. RISPERIDONE. [Concomitant]
     Active Substance: RISPERIDONE
     Indication: PRODUCT USED FOR UNKNOWN INDICATION
     Dosage: UNK
     Route: 065
     Dates: start: 20130501, end: 20141104
  3. LAMOTRIGINE. [Concomitant]
     Active Substance: LAMOTRIGINE
     Indication: PRODUCT USED FOR UNKNOWN INDICATION
     Dosage: UNK
     Route: 065
     Dates: start: 20130514, end: 20141104
  4. STERILE DILUENT [Suspect]
     Active Substance: WATER
     Indication: PROPHYLAXIS
     Dosage: UNK
     Dates: start: 20141011
  5. ALPRAZOLAM. [Concomitant]
     Active Substance: ALPRAZOLAM
     Indication: PRODUCT USED FOR UNKNOWN INDICATION
     Dosage: UNK
     Route: 065
     Dates: start: 20141013, end: 201411

REACTIONS (14)
  - Influenza [Not Recovered/Not Resolved]
  - Adverse event following immunisation [Unknown]
  - Malaise [Not Recovered/Not Resolved]
  - Nerve injury [Not Recovered/Not Resolved]
  - Nerve compression [Unknown]
  - Neuralgia [Unknown]
  - Vision blurred [Unknown]
  - Chronic inflammatory demyelinating polyradiculoneuropathy [Unknown]
  - Complex regional pain syndrome [Unknown]
  - Herpes zoster [Not Recovered/Not Resolved]
  - Polyneuropathy idiopathic progressive [Not Recovered/Not Resolved]
  - Small fibre neuropathy [Not Recovered/Not Resolved]
  - Pain [Unknown]
  - Vaccination failure [Unknown]

NARRATIVE: CASE EVENT DATE: 2014
